FAERS Safety Report 12628328 (Version 1)
Quarter: 2016Q3

REPORT INFORMATION
  Report Type: Spontaneous
  Country: US (occurrence: None)
  Receive Date: 20160805
  Receipt Date: 20160805
  Transmission Date: 20161109
  Serious: No
  Sender: FDA-Public Use
  Company Number: None

PATIENT

DRUGS (2)
  1. STIMATE [Suspect]
     Active Substance: DESMOPRESSIN ACETATE
     Dosage: SPRAY
     Route: 045
  2. DESMOPRESSIN ACETATE. [Suspect]
     Active Substance: DESMOPRESSIN ACETATE
     Dosage: SPRAY
     Route: 045

REACTIONS (1)
  - Product packaging confusion [None]
